FAERS Safety Report 5228033-6 (Version None)
Quarter: 2007Q1

REPORT INFORMATION
  Report Type: 
  Country: None (occurrence: None)
  Receive Date: 20061201
  Receipt Date: 20061016
  Transmission Date: 20070707
  Serious: Yes (Hospitalization)
  Sender: FDA-Public Use
  Company Number: 2006-0010466

PATIENT
  Age: 40 Year
  Sex: Female
  Weight: 50 kg

DRUGS (2)
  1. TRUVADA [Suspect]
     Indication: HIV INFECTION
     Dosage: HIV INFECTION
  2. KALETRA [Concomitant]

REACTIONS (3)
  - CANDIDIASIS [None]
  - OESOPHAGITIS [None]
  - RENAL FAILURE [None]
